FAERS Safety Report 10331137 (Version 5)
Quarter: 2022Q4

REPORT INFORMATION
  Report Type: Spontaneous
  Country: JP (occurrence: None)
  Receive Date: 20140722
  Receipt Date: 20221202
  Transmission Date: 20230112
  Serious: Yes (Hospitalization)
  Sender: FDA-Public Use
  Company Number: 2014SE52033

PATIENT
  Age: 21539 Day
  Sex: Female
  Weight: 71 kg

DRUGS (7)
  1. FASLODEX [Suspect]
     Active Substance: FULVESTRANT
     Indication: Invasive ductal breast carcinoma
     Route: 030
     Dates: start: 20120625, end: 20120709
  2. FASLODEX [Suspect]
     Active Substance: FULVESTRANT
     Indication: Invasive ductal breast carcinoma
     Route: 030
     Dates: start: 20120723, end: 20140714
  3. DENOSUMAB [Suspect]
     Active Substance: DENOSUMAB
     Indication: Metastases to bone
     Route: 058
     Dates: start: 20120723, end: 20140714
  4. CRESTOR [Concomitant]
     Active Substance: ROSUVASTATIN CALCIUM
     Indication: Hyperlipidaemia
     Route: 048
     Dates: start: 20100204
  5. CELECOXIB [Concomitant]
     Active Substance: CELECOXIB
     Indication: Bone pain
     Route: 048
     Dates: start: 20110411, end: 20140616
  6. CELECOXIB [Concomitant]
     Active Substance: CELECOXIB
     Indication: Spinal osteoarthritis
     Route: 048
     Dates: start: 20110411, end: 20140616
  7. MAGNESIUM OXIDE [Concomitant]
     Active Substance: MAGNESIUM OXIDE
     Indication: Constipation
     Route: 048
     Dates: start: 20140224

REACTIONS (2)
  - Anaphylactoid reaction [Recovered/Resolved]
  - Paraesthesia [Unknown]

NARRATIVE: CASE EVENT DATE: 20140714
